FAERS Safety Report 5886993-4 (Version None)
Quarter: 2008Q3

REPORT INFORMATION
  Report Type: 
  Country: None (occurrence: None)
  Receive Date: 20080917
  Receipt Date: 20080910
  Transmission Date: 20090109
  Serious: Yes (Death, Life-Threatening)
  Sender: FDA-Public Use
  Company Number: US-ROXANE LABORATORIES, INC.-2008-RO-00017RO

PATIENT
  Age: 20 Month
  Sex: Male

DRUGS (4)
  1. METHADONE HCL [Suspect]
     Route: 048
  2. AMITRIPTYLINE HCL [Suspect]
  3. ANTICONVULSANT [Suspect]
  4. BENZODIAZEPINE [Suspect]

REACTIONS (3)
  - CEREBRAL HAEMORRHAGE [None]
  - CEREBRAL INFARCTION [None]
  - SEPSIS [None]
